FAERS Safety Report 19391398 (Version 1)
Quarter: 2021Q2

REPORT INFORMATION
  Report Type: Spontaneous
  Country: US (occurrence: US)
  Receive Date: 20210608
  Receipt Date: 20210608
  Transmission Date: 20210717
  Serious: Yes (Congenital Anomaly, Other)
  Sender: FDA-Public Use
  Company Number: NVSC2021US127425

PATIENT
  Sex: Female
  Weight: 1.25 kg

DRUGS (1)
  1. METHOTREXATE. [Suspect]
     Active Substance: METHOTREXATE
     Indication: FOETAL EXPOSURE DURING PREGNANCY
     Dosage: MATERNAL DOSE: UNK
     Route: 064

REACTIONS (9)
  - Ectrodactyly [Unknown]
  - Clinodactyly [Unknown]
  - Talipes [Unknown]
  - Foetal exposure during pregnancy [Unknown]
  - Premature baby [Unknown]
  - Congenital spinal stenosis [Unknown]
  - Brachydactyly [Unknown]
  - Craniosynostosis [Unknown]
  - Phalangeal hypoplasia [Unknown]
